FAERS Safety Report 8046457-9 (Version None)
Quarter: 2012Q1

REPORT INFORMATION
  Report Type: 
  Country: None (occurrence: None)
  Receive Date: 20120113
  Receipt Date: 20120106
  Transmission Date: 20120608
  Serious: Yes (Other)
  Sender: FDA-Public Use
  Company Number: US-ABBOTT-12P-163-0890686-00

PATIENT
  Sex: Female
  Weight: 70.37 kg

DRUGS (13)
  1. BUTALBITAL/ACETAMINOPHEN [Concomitant]
     Indication: MIGRAINE
  2. GABAPENTIN [Concomitant]
     Indication: FIBROMYALGIA
  3. HUMIRA [Suspect]
     Indication: RHEUMATOID ARTHRITIS
     Dates: start: 20100101, end: 20110101
  4. PROMETHAZINE [Concomitant]
     Indication: NAUSEA
  5. HUMIRA [Suspect]
     Dates: start: 20110101
  6. SIMVASTATIN [Concomitant]
     Indication: BLOOD CHOLESTEROL INCREASED
  7. ZOLPIDEM [Concomitant]
     Indication: SLEEP DISORDER THERAPY
  8. HYDROXYCHLOROQUINE SULFATE [Concomitant]
     Indication: RHEUMATOID ARTHRITIS
  9. PROMETHAZINE [Concomitant]
     Indication: MIGRAINE
  10. CITALOPRAM HYDROBROMIDE [Concomitant]
     Indication: DEPRESSION
  11. CLONAZEPAM [Concomitant]
     Indication: ANXIOLYTIC THERAPY
  12. PRILOSEC [Concomitant]
     Indication: GASTROOESOPHAGEAL REFLUX DISEASE
  13. BUPROPION HCL [Concomitant]
     Indication: DEPRESSION

REACTIONS (20)
  - ABNORMAL SENSATION IN EYE [None]
  - RHEUMATOID ARTHRITIS [None]
  - NECK PAIN [None]
  - CARTILAGE INJURY [None]
  - PAIN [None]
  - BACK PAIN [None]
  - BLOOD PRESSURE INCREASED [None]
  - FALL [None]
  - HYPERTENSION [None]
  - HEADACHE [None]
  - BLOOD PRESSURE SYSTOLIC DECREASED [None]
  - ARTHRALGIA [None]
  - POST-TRAUMATIC NECK SYNDROME [None]
  - EYE PAIN [None]
  - ROAD TRAFFIC ACCIDENT [None]
  - LOSS OF CONSCIOUSNESS [None]
  - SOMNOLENCE [None]
  - HYPOPHAGIA [None]
  - LACERATION [None]
  - CONTUSION [None]
